FAERS Safety Report 9055903 (Version 2)
Quarter: 2014Q1

REPORT INFORMATION
  Report Type: Spontaneous
  Country: US (occurrence: US)
  Receive Date: 20130206
  Receipt Date: 20140203
  Transmission Date: 20141002
  Serious: No
  Sender: FDA-Public Use
  Company Number: US-ALLERGAN-1200819US

PATIENT
  Age: 86 Year
  Sex: Female

DRUGS (8)
  1. RESTASIS [Suspect]
     Indication: DRY EYE
     Dosage: 2 GTT, UNK
     Route: 047
  2. RESTASIS [Suspect]
     Dosage: 2 GTT, BID
     Route: 047
     Dates: start: 20111014, end: 201212
  3. BLOOD PRESSURE MEDICATION NOS [Suspect]
     Indication: PRODUCT USED FOR UNKNOWN INDICATION
  4. BLOOD THINNERS NOS [Suspect]
     Indication: PRODUCT USED FOR UNKNOWN INDICATION
  5. GENTEAL                            /00445101/ [Concomitant]
     Indication: DRY EYE
     Dosage: UNK
     Route: 047
  6. FML OINTMENT 0.1% [Concomitant]
     Indication: PRODUCT USED FOR UNKNOWN INDICATION
     Dosage: UNK
     Route: 047
  7. REFRESH OPTIVE [Concomitant]
     Indication: DRY EYE
  8. UNSPECIFIED MEDICATION [Concomitant]
     Indication: DRY EYE

REACTIONS (8)
  - Conjunctival haemorrhage [Unknown]
  - Eyelids pruritus [Unknown]
  - Eye irritation [Recovered/Resolved]
  - Drug ineffective [Unknown]
  - Instillation site pain [Recovered/Resolved]
  - Vision blurred [Recovered/Resolved]
  - Instillation site pruritus [Recovered/Resolved]
  - Foreign body sensation in eyes [Recovered/Resolved]
